FAERS Safety Report 8354082 (Version 3)
Quarter: 2015Q1

REPORT INFORMATION
  Report Type: Report from Study
  Country: US (occurrence: US)
  Receive Date: 20120125
  Receipt Date: 20150223
  Transmission Date: 20150721
  Serious: Yes (Death)
  Sender: FDA-Public Use
  Company Number: US-ROCHE-1032858

PATIENT
  Sex: Female
  Weight: 43.58 kg

DRUGS (2)
  1. TARCEVA [Suspect]
     Active Substance: ERLOTINIB HYDROCHLORIDE
     Indication: MALIGNANT URINARY TRACT NEOPLASM
     Route: 048
  2. AVASTIN [Suspect]
     Active Substance: BEVACIZUMAB
     Indication: MALIGNANT URINARY TRACT NEOPLASM
     Route: 042

REACTIONS (6)
  - Vomiting [Unknown]
  - Off label use [Unknown]
  - Nausea [Unknown]
  - Anaemia [Unknown]
  - Death [Fatal]
  - Asthenia [Unknown]
